FAERS Safety Report 5614340-1 (Version None)
Quarter: 2008Q1

REPORT INFORMATION
  Report Type: 
  Country: None (occurrence: None)
  Receive Date: 20080130
  Receipt Date: 20080128
  Transmission Date: 20080703
  Serious: Yes (Hospitalization)
  Sender: FDA-Public Use
  Company Number: E2090-00383-SPO-DE

PATIENT
  Sex: Male
  Weight: 74 kg

DRUGS (3)
  1. ZONEGRAN [Suspect]
     Indication: PARTIAL SEIZURES
     Dosage: 650 MG, UNKNOWN, ORAL ; 600 MG ORAL
     Route: 048
     Dates: start: 20071101
  2. VALPROIC ACID [Suspect]
     Indication: PARTIAL SEIZURES
     Dosage: 2000 MG ORAL; 1500 MG ORAL
     Route: 048
  3. LAMOTRIGINE [Concomitant]

REACTIONS (2)
  - DRUG INTERACTION [None]
  - PANCREATITIS ACUTE [None]
